FAERS Safety Report 7012249-2 (Version None)
Quarter: 2010Q3

REPORT INFORMATION
  Report Type: 
  Country: None (occurrence: None)
  Receive Date: 20100924
  Receipt Date: 20100916
  Transmission Date: 20110219
  Serious: Yes (Hospitalization)
  Sender: FDA-Public Use
  Company Number: FR-EISAI INC.-E3810-04104-SPO-FR

PATIENT
  Sex: Female

DRUGS (5)
  1. PARIET (RABEPRAZOLE) [Suspect]
     Dosage: UNKNOWN
     Route: 048
     Dates: end: 20090629
  2. LYRICA [Suspect]
     Route: 048
     Dates: start: 20080601, end: 20090629
  3. TOPALGIC [Concomitant]
  4. DOLIPRANE [Concomitant]
  5. NON STEROIDAL ANTI-INFLAMMATORY DRUG [Concomitant]

REACTIONS (2)
  - LEUKOPENIA [None]
  - NEUTROPENIA [None]
